FAERS Safety Report 10161673 (Version 1)
Quarter: 2014Q2

REPORT INFORMATION
  Report Type: Report from Study
  Country: FR (occurrence: FR)
  Receive Date: 20140509
  Receipt Date: 20140509
  Transmission Date: 20141212
  Serious: Yes (Hospitalization)
  Sender: FDA-Public Use
  Company Number: FR-ROCHE-1396147

PATIENT
  Sex: Female

DRUGS (12)
  1. RITUXIMAB [Suspect]
     Indication: RHEUMATOID ARTHRITIS
     Route: 041
     Dates: start: 20090126
  2. RITUXIMAB [Suspect]
     Route: 041
     Dates: start: 20090209
  3. RITUXIMAB [Suspect]
     Dosage: STOPPED ON 25/FEB/2010.
     Route: 041
     Dates: start: 20090910
  4. TOCILIZUMAB [Suspect]
     Indication: RHEUMATOID ARTHRITIS
     Route: 065
     Dates: start: 20100528
  5. METHOTREXATE [Concomitant]
     Route: 065
     Dates: start: 20090209
  6. METHOTREXATE [Concomitant]
     Route: 065
     Dates: start: 20090910, end: 20090924
  7. METHOTREXATE [Concomitant]
     Route: 065
     Dates: start: 20100225
  8. CORTANCYL [Concomitant]
     Route: 065
     Dates: start: 20090209
  9. CORTANCYL [Concomitant]
     Route: 065
     Dates: start: 20090910
  10. PARACETAMOL [Concomitant]
  11. CORTISONE [Concomitant]
  12. CARTREX [Concomitant]

REACTIONS (3)
  - Hepatocellular injury [Recovered/Resolved]
  - Drug hypersensitivity [Recovered/Resolved]
  - Coronary artery stenosis [Recovered/Resolved]
